FAERS Safety Report 5098360-4 (Version None)
Quarter: 2006Q3

REPORT INFORMATION
  Report Type: 
  Country: None (occurrence: None)
  Receive Date: 20060906
  Receipt Date: 20060810
  Transmission Date: 20061208
  Serious: Yes (Hospitalization)
  Sender: FDA-Public Use
  Company Number: PL-BRISTOL-MYERS SQUIBB COMPANY-13471412

PATIENT
  Age: 64 Year
  Sex: Male
  Weight: 93 kg

DRUGS (19)
  1. CISPLATIN [Suspect]
     Indication: NON-SMALL CELL LUNG CANCER
     Route: 013
     Dates: start: 20060711, end: 20060711
  2. PF-3512676 [Suspect]
     Indication: NON-SMALL CELL LUNG CANCER
     Dosage: DAYS 8 AND 15
     Route: 058
     Dates: start: 20060718
  3. GEMCITABINE [Suspect]
     Indication: NON-SMALL CELL LUNG CANCER
     Route: 042
     Dates: start: 20060711
  4. ACETYLSALICYLIC ACID [Concomitant]
  5. METOPROLOL TARTRATE [Concomitant]
     Dates: start: 20040501
  6. ENALAPRIL [Concomitant]
     Dates: start: 20040501, end: 20060718
  7. GLIMEPIRIDE [Concomitant]
     Dates: start: 20060101
  8. METFORMIN HCL [Concomitant]
     Dates: start: 20060101
  9. PHYTOMENADIONE [Concomitant]
     Dates: start: 20060613
  10. ISOSORBIDE MONONITRATE [Concomitant]
     Dates: start: 20060613
  11. MANNITOL [Concomitant]
     Dates: start: 20060627
  12. ETAMSYLATE [Concomitant]
     Dates: start: 20060613
  13. FLUVASTATIN [Concomitant]
     Dates: start: 20040101
  14. ELECTROLYTE SOLUTION [Concomitant]
     Route: 042
     Dates: start: 20060727, end: 20060727
  15. FUROSEMIDE [Concomitant]
     Route: 042
     Dates: start: 20060727, end: 20060727
  16. DEXAMETHASONE TAB [Concomitant]
     Route: 042
     Dates: start: 20060727, end: 20060728
  17. PIRACETAM [Concomitant]
     Route: 048
     Dates: start: 20060728
  18. FAMOTIDINE [Concomitant]
     Route: 048
     Dates: start: 20060727, end: 20060728
  19. BENCYCLANE [Concomitant]
     Dates: start: 20060801

REACTIONS (3)
  - DYSARTHRIA [None]
  - PARESIS [None]
  - SYNCOPE [None]
